FAERS Safety Report 4800482-7 (Version None)
Quarter: 2005Q4

REPORT INFORMATION
  Report Type: 
  Country: None (occurrence: None)
  Receive Date: 20051013
  Receipt Date: 20050928
  Transmission Date: 20060501
  Serious: Yes (Hospitalization)
  Sender: FDA-Public Use
  Company Number: US_0508120839

PATIENT
  Age: 49 Year
  Sex: Male
  Weight: 80 kg

DRUGS (2)
  1. OLANZAPINE [Suspect]
     Indication: SCHIZOPHRENIA
     Dates: start: 20050126, end: 20050302
  2. LORAFEN (LORAZEPAM) [Concomitant]

REACTIONS (4)
  - ACUTE CORONARY SYNDROME [None]
  - HAEMOLYTIC URAEMIC SYNDROME [None]
  - MYOCARDIAL INFARCTION [None]
  - PULMONARY OEDEMA [None]
